FAERS Safety Report 24910365 (Version 1)
Quarter: 2025Q1

REPORT INFORMATION
  Report Type: Spontaneous
  Country: US (occurrence: US)
  Receive Date: 20250131
  Receipt Date: 20250131
  Transmission Date: 20250409
  Serious: Yes (Other)
  Sender: AMGEN
  Company Number: US-AMGEN-USASP2025016381

PATIENT
  Sex: Male

DRUGS (2)
  1. CORLANOR [Suspect]
     Active Substance: IVABRADINE HYDROCHLORIDE
     Indication: Product used for unknown indication
     Route: 065
  2. ENTRESTO [Concomitant]
     Active Substance: SACUBITRIL\VALSARTAN

REACTIONS (12)
  - Cardiac assistance device user [Unknown]
  - Supraventricular tachycardia [Unknown]
  - Ventricular extrasystoles [Unknown]
  - Device malfunction [Unknown]
  - Ejection fraction decreased [Unknown]
  - Chest pain [Unknown]
  - Fatigue [Unknown]
  - Malaise [Unknown]
  - Blood pressure decreased [Unknown]
  - Feeling abnormal [Not Recovered/Not Resolved]
  - COVID-19 [Unknown]
  - Ill-defined disorder [Unknown]
